FAERS Safety Report 8935675 (Version 1)
Quarter: 2012Q4

REPORT INFORMATION
  Report Type: 
  Country: GB (occurrence: GB)
  Receive Date: 20121130
  Receipt Date: 20121130
  Transmission Date: 20130627
  Serious: Yes (Hospitalization)
  Sender: FDA-Public Use
  Company Number: PHFR2012GB006204

PATIENT
  Sex: Male

DRUGS (5)
  1. CLOZARIL [Suspect]
     Indication: SCHIZOPHRENIA
     Dosage: 500 mg, UNK
     Route: 048
     Dates: start: 20100910
  2. AMISULPRIDE [Concomitant]
     Indication: DEPRESSION
     Dosage: 100 mg, UNK
     Route: 048
  3. ESCITALOPRAM [Concomitant]
     Indication: DEPRESSION
     Dosage: 20 mg, UNK
     Route: 048
  4. OMACOR [Concomitant]
     Dosage: 5 mg, UNK
     Route: 048
  5. LORAZEPAM [Concomitant]
     Indication: ANXIETY
     Dosage: 6 mg, UNK
     Route: 048

REACTIONS (1)
  - Panic attack [Recovered/Resolved]
